FAERS Safety Report 26168469 (Version 1)
Quarter: 2025Q4

REPORT INFORMATION
  Report Type: Spontaneous
  Country: US (occurrence: US)
  Receive Date: 20251217
  Receipt Date: 20251217
  Transmission Date: 20260118
  Serious: Yes (Hospitalization, Other)
  Sender: MANKIND PHARMA
  Company Number: US-MANKIND PHARMA LIMITED-2025-US-00189

PATIENT

DRUGS (7)
  1. VARENICLINE TARTRATE [Interacting]
     Active Substance: VARENICLINE TARTRATE
     Indication: Smoking cessation therapy
     Dosage: UNK
  2. VARENICLINE TARTRATE [Interacting]
     Active Substance: VARENICLINE TARTRATE
     Dosage: UNK; DOSE INCREASED
  3. OLANZAPINE [Interacting]
     Active Substance: OLANZAPINE
     Indication: Product used for unknown indication
     Dosage: UNK
  4. DULOXETINE [Suspect]
     Active Substance: DULOXETINE
     Indication: Product used for unknown indication
  5. LURASIDONE [Concomitant]
     Active Substance: LURASIDONE
     Indication: Product used for unknown indication
     Dosage: 60 MILLIGRAM
  6. HYDROXYZINE [Concomitant]
     Active Substance: HYDROXYZINE HYDROCHLORIDE
     Indication: Product used for unknown indication
     Dosage: UNK
  7. LAMOTRIGINE [Concomitant]
     Active Substance: LAMOTRIGINE
     Indication: Product used for unknown indication

REACTIONS (10)
  - Neuroleptic malignant syndrome [Recovered/Resolved]
  - Inappropriate antidiuretic hormone secretion [Unknown]
  - Polydipsia psychogenic [Unknown]
  - Drug level increased [Unknown]
  - Insomnia [Unknown]
  - Dizziness [Unknown]
  - Irritability [Unknown]
  - Agitation [Unknown]
  - Therapy cessation [Unknown]
  - Drug interaction [Unknown]
